FAERS Safety Report 17005819 (Version 2)
Quarter: 2019Q4

REPORT INFORMATION
  Report Type: Spontaneous
  Country: US (occurrence: US)
  Receive Date: 20191107
  Receipt Date: 20191220
  Transmission Date: 20200122
  Serious: Yes (Hospitalization)
  Sender: FDA-Public Use
  Company Number: US-MALLINCKRODT-T201907204

PATIENT
  Sex: Female

DRUGS (1)
  1. H.P. ACTHAR [Suspect]
     Active Substance: CORTICOTROPIN
     Indication: RHEUMATOID ARTHRITIS
     Dosage: 80 UNITS/ 1 ML, TWO TIMES A WEEK, AS DIRECTED
     Route: 058
     Dates: start: 201907

REACTIONS (4)
  - Product storage error [Unknown]
  - Aortic aneurysm [Unknown]
  - Product dose omission [Unknown]
  - Pleural effusion [Unknown]
